FAERS Safety Report 19458944 (Version 1)
Quarter: 2021Q2

REPORT INFORMATION
  Report Type: Spontaneous
  Country: US (occurrence: US)
  Receive Date: 20210624
  Receipt Date: 20210624
  Transmission Date: 20210717
  Serious: Yes (Other)
  Sender: FDA-Public Use
  Company Number: None

PATIENT
  Sex: Female

DRUGS (2)
  1. OLAY SHOWER + BATH LIQUID BODY WASH [COSMETICS] [Suspect]
     Active Substance: COSMETICS
     Route: 061
  2. SECRET DERMA PLUS ANTIPERSPIRANT COOLING [Suspect]
     Active Substance: ALUMINUM ZIRCONIUM OCTACHLOROHYDREX GLY

REACTIONS (2)
  - Coma [None]
  - Skin disorder [None]
